FAERS Safety Report 4414157-X (Version None)
Quarter: 2004Q3

REPORT INFORMATION
  Report Type: 
  Country: None (occurrence: None)
  Receive Date: 20040728
  Receipt Date: 20040712
  Transmission Date: 20050211
  Serious: Yes (Death, Hospitalization)
  Sender: FDA-Public Use
  Company Number: 2004-DE-03828GD(0)

PATIENT
  Age: 48 Year
  Sex: Female

DRUGS (3)
  1. CYCLOPHOSPHAMIDE [Suspect]
     Indication: B-CELL LYMPHOMA STAGE III
     Dosage: SEE IMAGE
     Route: 042
  2. VINCRISTINE [Suspect]
     Indication: B-CELL LYMPHOMA STAGE III
     Dosage: 2 MG, IV
     Route: 042
  3. PREDNISOLONE [Suspect]
     Indication: B-CELL LYMPHOMA STAGE III
     Dosage: 2 MG/KG, PO
     Route: 048

REACTIONS (17)
  - AGRANULOCYTOSIS [None]
  - ALVEOLITIS [None]
  - AMAUROSIS [None]
  - ANAEMIA [None]
  - CONJUNCTIVITIS [None]
  - CORNEAL ULCER [None]
  - DRUG TOXICITY [None]
  - DYSPNOEA [None]
  - ERYTHEMA MULTIFORME [None]
  - GENERAL PHYSICAL HEALTH DETERIORATION [None]
  - HYPOXIA [None]
  - LICHEN PLANUS [None]
  - OBSTRUCTIVE AIRWAYS DISORDER [None]
  - PARANEOPLASTIC SYNDROME [None]
  - RASH PAPULAR [None]
  - RESPIRATORY FAILURE [None]
  - STOMATITIS [None]
